FAERS Safety Report 5935180-X (Version None)
Quarter: 2008Q4

REPORT INFORMATION
  Report Type: 
  Country: None (occurrence: None)
  Receive Date: 20081028
  Receipt Date: 20081013
  Transmission Date: 20090506
  Serious: Yes (Hospitalization)
  Sender: FDA-Public Use
  Company Number: 2008BM000202

PATIENT
  Age: 18 Year
  Sex: Male

DRUGS (1)
  1. NAGLAZYME [Suspect]
     Indication: MUCOPOLYSACCHARIDOSIS VI
     Dosage: ;IVDRP
     Route: 041
     Dates: start: 20080901

REACTIONS (2)
  - CARDIAC FAILURE [None]
  - PNEUMONIA [None]
